FAERS Safety Report 6417824-1 (Version None)
Quarter: 2009Q4

REPORT INFORMATION
  Report Type: 
  Country: None (occurrence: None)
  Receive Date: 20091028
  Receipt Date: 20091022
  Transmission Date: 20100525
  Serious: Yes (Death)
  Sender: FDA-Public Use
  Company Number: US-GILEAD-2009-0024969

PATIENT
  Sex: Female
  Weight: 84.1 kg

DRUGS (9)
  1. LETAIRIS [Suspect]
     Indication: PULMONARY ARTERIAL HYPERTENSION
     Route: 048
     Dates: start: 20071109
  2. COUMADIN [Concomitant]
  3. LASIX [Concomitant]
  4. AVAPRO [Concomitant]
  5. SPIRONOLACTONE [Concomitant]
  6. METOPROLOL [Concomitant]
  7. LIPITOR [Concomitant]
  8. TRAZODONE [Concomitant]
  9. ASPIRIN [Concomitant]

REACTIONS (1)
  - DEATH [None]
